FAERS Safety Report 25436017 (Version 3)
Quarter: 2025Q3

REPORT INFORMATION
  Report Type: Spontaneous
  Country: JP (occurrence: JP)
  Receive Date: 20250613
  Receipt Date: 20250802
  Transmission Date: 20251021
  Serious: Yes (Life-Threatening, Hospitalization)
  Sender: ALEXION PHARMACEUTICALS
  Company Number: JP-ASTRAZENECA-250034869_064320_P_1

PATIENT
  Age: 71 Year
  Sex: Male
  Weight: 44 kg

DRUGS (8)
  1. ANDEXXA [Suspect]
     Active Substance: ANDEXANET ALFA
     Indication: Cerebral haemorrhage
     Dates: start: 20241008, end: 20241008
  2. BISOPROLOL [Concomitant]
     Active Substance: BISOPROLOL
     Route: 065
  3. EDOXABAN TOSYLATE [Concomitant]
     Active Substance: EDOXABAN TOSYLATE
     Indication: Atrial flutter
     Dosage: 30 MILLIGRAM, QD
     Dates: start: 20241022
  4. EDOXABAN TOSYLATE [Concomitant]
     Active Substance: EDOXABAN TOSYLATE
     Dosage: 30 MILLIGRAM, QD
     Dates: start: 20230403, end: 20241008
  5. ENTECAVIR [Concomitant]
     Active Substance: ENTECAVIR
     Route: 065
  6. MEQUITAZINE [Concomitant]
     Active Substance: MEQUITAZINE
     Route: 065
  7. FOSPHENYTOIN SODIUM [Concomitant]
     Active Substance: FOSPHENYTOIN SODIUM
     Indication: Epilepsy
     Dosage: 1125 MILLIGRAM, QD
     Dates: start: 20241010, end: 20241010
  8. PRASUGREL HYDROCHLORIDE [Concomitant]
     Active Substance: PRASUGREL HYDROCHLORIDE
     Indication: Acute myocardial infarction
     Dosage: 3.75 MILLIGRAM, QD
     Dates: start: 20241012

REACTIONS (1)
  - Acute myocardial infarction [Recovering/Resolving]

NARRATIVE: CASE EVENT DATE: 20241011
